FAERS Safety Report 18371463 (Version 4)
Quarter: 2021Q1

REPORT INFORMATION
  Report Type: Spontaneous
  Country: US (occurrence: US)
  Receive Date: 20201012
  Receipt Date: 20210106
  Transmission Date: 20210419
  Serious: No
  Sender: FDA-Public Use
  Company Number: US-PFIZER INC-2020392591

PATIENT
  Age: 72 Year
  Sex: Female
  Weight: 113 kg

DRUGS (3)
  1. IBRANCE [Suspect]
     Active Substance: PALBOCICLIB
     Dosage: 125 MG, CYCLIC (ONCE A DAY FOR THREE WEEKS AND THEN OFF ONE WEEK)
     Dates: start: 201902
  2. LETROZOLE. [Concomitant]
     Active Substance: LETROZOLE
     Dosage: 2.5 MG, 1X/DAY
     Dates: start: 201902
  3. IBRANCE [Suspect]
     Active Substance: PALBOCICLIB
     Indication: BREAST CANCER METASTATIC
     Dosage: 125 MG
     Dates: start: 20190208

REACTIONS (5)
  - Alopecia [Unknown]
  - Headache [Unknown]
  - Nausea [Unknown]
  - Impaired quality of life [Unknown]
  - Stomatitis [Unknown]

NARRATIVE: CASE EVENT DATE: 202009
